FAERS Safety Report 8590518-2 (Version None)
Quarter: 2012Q3

REPORT INFORMATION
  Report Type: 
  Country: None (occurrence: None)
  Receive Date: 20120813
  Receipt Date: 20120807
  Transmission Date: 20120928
  Serious: Yes (Other)
  Sender: FDA-Public Use
  Company Number: US-COVIDIEN/TYCO HEALTHCARE/MALLINCKRODT-T201203026

PATIENT
  Age: 30 Year
  Sex: Male

DRUGS (1)
  1. HYDROMORPHONE HYDROCHLORIDE [Suspect]
     Dosage: UNK

REACTIONS (2)
  - DRUG ABUSE [None]
  - TRAUMATIC LUNG INJURY [None]
